FAERS Safety Report 6058775-4 (Version None)
Quarter: 2009Q1

REPORT INFORMATION
  Report Type: 
  Country: None (occurrence: None)
  Receive Date: 20090130
  Receipt Date: 20090123
  Transmission Date: 20090719
  Serious: Yes (Other)
  Sender: FDA-Public Use
  Company Number: BR-JNJCH-2009002523

PATIENT
  Sex: Female

DRUGS (1)
  1. POLYSPORIN OINTMENT [Suspect]
     Indication: DRUG USE FOR UNKNOWN INDICATION
     Dosage: TEXT:UNSPECIFIED
     Route: 061

REACTIONS (3)
  - ANKLE FRACTURE [None]
  - EXPIRED DRUG ADMINISTERED [None]
  - FALL [None]
